FAERS Safety Report 6897137-4 (Version None)
Quarter: 2010Q3

REPORT INFORMATION
  Report Type: 
  Country: None (occurrence: None)
  Receive Date: 20100802
  Receipt Date: 20100728
  Transmission Date: 20110219
  Serious: Yes (Hospitalization)
  Sender: FDA-Public Use
  Company Number: US-GILEAD-2010-0030744

PATIENT
  Age: 60 Year
  Sex: Female
  Weight: 99.426 kg

DRUGS (11)
  1. LETAIRIS [Suspect]
     Indication: PULMONARY ARTERIAL HYPERTENSION
     Route: 048
     Dates: start: 20090218
  2. WARFARIN SODIUM [Concomitant]
  3. TRIAMTERENE AND HYDROCHLOROTHIAZIDE [Concomitant]
  4. SIMVASTATIN [Concomitant]
  5. GLIPIZIDE [Concomitant]
  6. NOVOLIN [Concomitant]
  7. SUCRALFATE [Concomitant]
  8. LEVOTHYROXINE SODIUM [Concomitant]
  9. CENTRUM [Concomitant]
  10. VITAMIN D [Concomitant]
  11. ASCORBIC ACID [Concomitant]

REACTIONS (1)
  - LUNG NEOPLASM MALIGNANT [None]
